FAERS Safety Report 16489114 (Version 1)
Quarter: 2019Q2

REPORT INFORMATION
  Report Type: Spontaneous
  Country: US (occurrence: US)
  Receive Date: 20190517
  Receipt Date: 20190517
  Transmission Date: 20190711
  Serious: No
  Sender: FDA-Public Use
  Company Number: None

PATIENT
  Age: 22 Year
  Sex: Male

DRUGS (1)
  1. STELARA [Suspect]
     Active Substance: USTEKINUMAB
     Indication: CROHN^S DISEASE
     Dosage: 90MG/ML 1 SYRINGE EVERY 8 WEEK  SQ??DECEMBER TO CURRENT
     Route: 058

REACTIONS (2)
  - Vitamin D decreased [None]
  - Diarrhoea [None]

NARRATIVE: CASE EVENT DATE: 201812
